FAERS Safety Report 6461100-8 (Version None)
Quarter: 2009Q4

REPORT INFORMATION
  Report Type: 
  Country: None (occurrence: None)
  Receive Date: 20091130
  Receipt Date: 20091120
  Transmission Date: 20100525
  Serious: Yes (Hospitalization)
  Sender: FDA-Public Use
  Company Number: B0608239A

PATIENT
  Sex: Male

DRUGS (3)
  1. WELLBUTRIN SR [Suspect]
     Indication: DEPRESSION
     Dosage: 150MG PER DAY
     Route: 048
     Dates: start: 20031108
  2. LITHIUM [Concomitant]
     Dates: start: 20031108, end: 20031231
  3. PROZAC [Concomitant]
     Dates: start: 20031024, end: 20031231

REACTIONS (1)
  - BRAIN CONTUSION [None]
